FAERS Safety Report 7009667-5 (Version None)
Quarter: 2010Q3

REPORT INFORMATION
  Report Type: 
  Country: None (occurrence: None)
  Receive Date: 20100923
  Receipt Date: 20100916
  Transmission Date: 20110219
  Serious: Yes (Other)
  Sender: FDA-Public Use
  Company Number: US-PFIZER INC-2010095682

PATIENT
  Sex: Female
  Weight: 77.1 kg

DRUGS (4)
  1. XALATAN [Suspect]
     Indication: GLAUCOMA
     Dosage: 2 DROPS 2X/DAY IN EACH EYE
     Route: 047
  2. MINOCYCLINE [Concomitant]
     Dosage: 50 MG, 1X/DAY
     Route: 048
  3. CITALOPRAM [Concomitant]
     Dosage: 20 MG, 1X/DAY
     Route: 048
  4. FEXOFENADINE [Concomitant]
     Dosage: 60 MG, 2X/DAY

REACTIONS (3)
  - CHOLECYSTECTOMY [None]
  - COELIAC DISEASE [None]
  - NAUSEA [None]
